FAERS Safety Report 10792528 (Version 1)
Quarter: 2015Q1

REPORT INFORMATION
  Report Type: Spontaneous
  Country: US (occurrence: US)
  Receive Date: 20150213
  Receipt Date: 20150213
  Transmission Date: 20150721
  Serious: No
  Sender: FDA-Public Use
  Company Number: US-GLAXOSMITHKLINE-A1082165A

PATIENT

DRUGS (4)
  1. VENTOLIN [Suspect]
     Active Substance: ALBUTEROL SULFATE
     Route: 055
  2. TERCONAZOLE SUPPOSITORY [Concomitant]
  3. CIPRO [Concomitant]
     Active Substance: CIPROFLOXACIN HYDROCHLORIDE
  4. METOPROLOL [Concomitant]
     Active Substance: METOPROLOL

REACTIONS (5)
  - Chest discomfort [Recovering/Resolving]
  - Dyspnoea [Unknown]
  - Medication error [Unknown]
  - Product quality issue [Unknown]
  - Malaise [Unknown]

NARRATIVE: CASE EVENT DATE: 20140720
